FAERS Safety Report 21580195 (Version 1)
Quarter: 2022Q4

REPORT INFORMATION
  Report Type: Spontaneous
  Country: US (occurrence: US)
  Receive Date: 20221110
  Receipt Date: 20221110
  Transmission Date: 20230113
  Serious: No
  Sender: FDA-Public Use
  Company Number: US-APOTEX-2022AP013993

PATIENT
  Sex: Female

DRUGS (1)
  1. FENTANYL TRANSDERMAL SYSTEM [Suspect]
     Active Substance: FENTANYL
     Indication: Nerve compression
     Dosage: UNK
     Route: 062

REACTIONS (3)
  - Renal disorder [Unknown]
  - Bladder disorder [Unknown]
  - Pain [Unknown]
